FAERS Safety Report 13892264 (Version 1)
Quarter: 2017Q3

REPORT INFORMATION
  Report Type: Spontaneous
  Country: US (occurrence: US)
  Receive Date: 20170822
  Receipt Date: 20170822
  Transmission Date: 20171127
  Serious: No
  Sender: FDA-Public Use
  Company Number: US-ENDO PHARMACEUTICALS INC-2017-000275

PATIENT
  Age: 49 Year
  Sex: Male

DRUGS (2)
  1. TESTOPEL [Suspect]
     Active Substance: TESTOSTERONE
     Dosage: UNK, 6 PELLETS REMAINED
     Route: 058
     Dates: start: 20161222
  2. TESTOPEL [Suspect]
     Active Substance: TESTOSTERONE
     Indication: BLOOD TESTOSTERONE DECREASED
     Dosage: UNK, 10 PELLETS IMPLANTED
     Route: 058
     Dates: start: 20161117, end: 20161222

REACTIONS (3)
  - Haemoglobin increased [Unknown]
  - Prescribed overdose [Recovered/Resolved]
  - Haematocrit increased [Unknown]

NARRATIVE: CASE EVENT DATE: 20161117
